FAERS Safety Report 9571603 (Version 1)
Quarter: 2013Q1

REPORT INFORMATION
  Report Type: Spontaneous
  Country: US (occurrence: None)
  Receive Date: 20130305
  Receipt Date: 20130305
  Transmission Date: 20140127
  Serious: Yes (Hospitalization)
  Sender: FDA-Public Use
  Company Number: 163-21880-12012358

PATIENT
  Age: 72 Year
  Sex: Female

DRUGS (13)
  1. REVLIMID [Suspect]
     Indication: PLASMA CELL MYELOMA
     Dosage: Q 21 DAYS, 7 DAYS OFF
     Route: 048
     Dates: start: 20100419, end: 20110523
  2. KCL (POTASSIUM CHLORIDE) [Concomitant]
  3. TYLENOL (PARACETAMOL) [Concomitant]
  4. VICODIN (VICODIN) [Concomitant]
  5. ALLOPURINOL [Concomitant]
  6. ASA (ACETYLSALICYLIC ACID) [Concomitant]
  7. CLONAZEPAM (CLONAZEPAM) (CLONAZEPAM) [Concomitant]
  8. LASIX (FUROSEMDIE) [Concomitant]
  9. GABAPENTIN (GABAPENTIN) [Concomitant]
  10. LEVOTHYROXINE (LEVOTHYROXINE) [Concomitant]
  11. LOSARTIN (LOSARTAN POTASSIUM) [Concomitant]
  12. ZOLPIDEM (ZOLPIDEM) [Concomitant]
  13. FENTANYL (FENTANYL) [Concomitant]

REACTIONS (3)
  - Confusional state [None]
  - Urinary tract infection [None]
  - Asthenia [None]
